FAERS Safety Report 4839476-4 (Version None)
Quarter: 2005Q4

REPORT INFORMATION
  Report Type: 
  Country: None (occurrence: None)
  Receive Date: 20051129
  Receipt Date: 20051114
  Transmission Date: 20060501
  Serious: Yes (Other)
  Sender: FDA-Public Use
  Company Number: GB-GLAXOSMITHKLINE-B0401152A

PATIENT
  Age: 35 Year
  Sex: Female

DRUGS (3)
  1. NIQUITIN CQ 21MG [Suspect]
     Dosage: 21MG PER DAY
     Route: 062
     Dates: start: 20050502, end: 20050602
  2. SALBUTAMOL [Concomitant]
     Indication: ASTHMA
     Dosage: 100MCG PER DAY
     Route: 055
  3. BECLOMETHASONE DIPROPIONATE [Concomitant]
     Indication: ASTHMA
     Dosage: 100MCG PER DAY
     Route: 055

REACTIONS (4)
  - DYSPNOEA [None]
  - HYPERHIDROSIS [None]
  - HYPERTHYROIDISM [None]
  - PALPITATIONS [None]
